FAERS Safety Report 7276232-4 (Version None)
Quarter: 2011Q1

REPORT INFORMATION
  Report Type: 
  Country: None (occurrence: None)
  Receive Date: 20110204
  Receipt Date: 20110128
  Transmission Date: 20110831
  Serious: Yes (Life-Threatening, Other)
  Sender: FDA-Public Use
  Company Number: PHHY2011JP01721

PATIENT
  Sex: Male

DRUGS (18)
  1. ACICLOVIR [Concomitant]
     Dosage: UNK
     Dates: start: 20100905, end: 20100908
  2. ISONIAZID [Concomitant]
     Dosage: UNK
     Dates: start: 20091109
  3. HYDROCORTISONE [Concomitant]
     Dosage: UNK
     Dates: start: 20100909
  4. SPIRONOLACTONE [Concomitant]
     Dosage: UNK
     Dates: start: 20100917
  5. FAMVIR [Suspect]
     Dosage: 2250 MG, QD
     Route: 048
     Dates: start: 20101005, end: 20101014
  6. PREGABALIN [Concomitant]
     Dosage: UNK
     Dates: start: 20100917
  7. FAMVIR [Suspect]
     Dosage: 2000 MG, QD
     Route: 048
     Dates: start: 20101015, end: 20101015
  8. FAMVIR [Suspect]
     Dosage: 1500 MG, QD
     Route: 048
     Dates: start: 20101016, end: 20101025
  9. FAMVIR [Suspect]
     Dosage: 500 MG, QD
     Route: 048
     Dates: start: 20101026, end: 20101031
  10. RABEPRAZOLE SODIUM [Concomitant]
     Dosage: UNK
     Dates: start: 20100810
  11. ITRACONAZOLE [Concomitant]
     Dosage: UNK
     Dates: start: 20100804
  12. SULFAMETHOXAZOLE AND TRIMETHOPRIM [Concomitant]
     Dosage: UNK
     Dates: start: 20100804
  13. FAMVIR [Suspect]
     Indication: HERPES ZOSTER
     Dosage: 1500 MG, QD
     Route: 048
     Dates: start: 20101004, end: 20101004
  14. VIDARABINE [Concomitant]
     Dosage: UNK
     Dates: start: 20100916, end: 20100926
  15. ACICLOVIR [Concomitant]
     Dosage: UNK
     Dates: start: 20100902, end: 20100904
  16. ENTECAVIR HYDRATE [Concomitant]
     Dosage: UNK
     Dates: start: 20091109
  17. VIDARABINE [Concomitant]
     Dosage: UNK
     Dates: start: 20100927, end: 20101003
  18. FUROSEMIDE [Concomitant]
     Dosage: UNK
     Dates: start: 20100917

REACTIONS (4)
  - DELIRIUM [None]
  - LOGORRHOEA [None]
  - HEPATIC FUNCTION ABNORMAL [None]
  - HALLUCINATION [None]
